FAERS Safety Report 8070206-1 (Version None)
Quarter: 2012Q1

REPORT INFORMATION
  Report Type: 
  Country: None (occurrence: None)
  Receive Date: 20120125
  Receipt Date: 20120111
  Transmission Date: 20120608
  Serious: Yes (Other)
  Sender: FDA-Public Use
  Company Number: FR-ACTELION-A-CH2012-59563

PATIENT
  Sex: Female

DRUGS (5)
  1. ACETAMINOPHEN AND TRAMADOL HCL [Concomitant]
  2. TRACLEER [Suspect]
     Indication: SKIN ULCER
     Dosage: 125 MG, BID
     Route: 048
     Dates: start: 20091008
  3. CHLORMADINONE ACETATE TAB [Concomitant]
  4. DILTIAZEM HCL [Concomitant]
  5. PLAQUENIL [Concomitant]

REACTIONS (2)
  - PREGNANCY [None]
  - ABORTION SPONTANEOUS [None]
